FAERS Safety Report 15979747 (Version 3)
Quarter: 2019Q3

REPORT INFORMATION
  Report Type: Other
  Country: CA (occurrence: CA)
  Receive Date: 20190219
  Receipt Date: 20190830
  Transmission Date: 20191004
  Serious: Yes (Hospitalization, Other)
  Sender: FDA-Public Use
  Company Number: CA-INTERCEPT-PM2019000219

PATIENT
  Age: 48 Year
  Sex: Female

DRUGS (12)
  1. SENNOSIDE [Concomitant]
     Active Substance: SENNOSIDES
     Dosage: UNK MG, PRN
     Route: 065
  2. HYDROMORPH CONTIN [Concomitant]
     Active Substance: HYDROMORPHONE
     Dosage: 9 MG, QD
     Route: 065
  3. GRAVOL [Concomitant]
     Active Substance: DIMENHYDRINATE
     Dosage: 25-50 MG, BID PRN
     Route: 065
  4. URSODIOL. [Concomitant]
     Active Substance: URSODIOL
     Dosage: 250 MG, BID
     Route: 065
  5. OCALIVA [Suspect]
     Active Substance: OBETICHOLIC ACID
     Dosage: 5 MG, QOD
     Route: 048
  6. NYSTATIN. [Concomitant]
     Active Substance: NYSTATIN
  7. ACETAMINOPHEN. [Concomitant]
     Active Substance: ACETAMINOPHEN
     Dosage: 1000 MG, TID
  8. FERROUS FUMARATE [Concomitant]
     Active Substance: FERROUS FUMARATE
     Dosage: 300 MG, BID
  9. OCALIVA [Suspect]
     Active Substance: OBETICHOLIC ACID
     Indication: PRIMARY BILIARY CHOLANGITIS
     Dosage: 5 MG, QD
     Route: 048
     Dates: start: 20180530
  10. BACLOFEN. [Concomitant]
     Active Substance: BACLOFEN
     Dosage: 5 MG, BID
     Route: 065
  11. PANTOPRAZOLE [Concomitant]
     Active Substance: PANTOPRAZOLE
     Dosage: 40 MG, QD
     Route: 065
  12. IBUPROFEN. [Concomitant]
     Active Substance: IBUPROFEN
     Dosage: 400 MG, TID

REACTIONS (22)
  - Hepatic failure [Unknown]
  - Hypotension [Unknown]
  - Vasculitis [Unknown]
  - Ascites [Unknown]
  - Hyperbilirubinaemia [Unknown]
  - Arthralgia [Unknown]
  - Duodenal ulcer haemorrhage [Unknown]
  - Pneumonia [Recovering/Resolving]
  - Hepatic encephalopathy [Unknown]
  - Pleural effusion [Unknown]
  - Hypoglycaemia [Unknown]
  - Cellulitis [Recovering/Resolving]
  - Malaise [Unknown]
  - Pulmonary alveolar haemorrhage [Unknown]
  - Limb mass [Unknown]
  - Autoimmune hepatitis [Unknown]
  - Altered state of consciousness [Unknown]
  - Transaminases increased [Unknown]
  - Acute kidney injury [Recovering/Resolving]
  - Pain in extremity [Unknown]
  - Anaemia [Unknown]
  - Arthritis [Unknown]

NARRATIVE: CASE EVENT DATE: 20190102
